FAERS Safety Report 4536717-8 (Version None)
Quarter: 2004Q4

REPORT INFORMATION
  Report Type: 
  Country: None (occurrence: None)
  Receive Date: 20041223
  Receipt Date: 20040426
  Transmission Date: 20050328
  Serious: Yes (Other)
  Sender: FDA-Public Use
  Company Number: 200413661JP

PATIENT
  Age: 67 Year
  Sex: Female
  Weight: 49.55 kg

DRUGS (15)
  1. ARAVA [Suspect]
     Indication: RHEUMATOID ARTHRITIS
     Route: 048
     Dates: start: 20040123, end: 20040125
  2. SHIOSOL [Concomitant]
     Indication: RHEUMATOID ARTHRITIS
     Dosage: DOSE: 25MG/MONTH
     Route: 030
     Dates: start: 20010605, end: 20040115
  3. METALCAPTASE [Concomitant]
     Indication: RHEUMATOID ARTHRITIS
     Route: 048
     Dates: start: 20010905, end: 20040121
  4. AZULFIDINE [Concomitant]
     Indication: RHEUMATOID ARTHRITIS
     Route: 048
     Dates: start: 20011017
  5. SELBEX [Concomitant]
     Indication: GASTRITIS
     Route: 048
     Dates: start: 20001030, end: 20040208
  6. BERIZYM [Concomitant]
     Indication: GASTRITIS
     Route: 048
     Dates: start: 20010104
  7. LOXONIN [Concomitant]
     Indication: RHEUMATOID ARTHRITIS
     Route: 048
     Dates: start: 20010310
  8. MUCOSTA [Concomitant]
     Indication: GASTRITIS
     Route: 048
     Dates: start: 20040209
  9. CONIEL [Concomitant]
     Indication: HYPERTENSION
     Route: 048
     Dates: end: 20040601
  10. BLOPRESS [Concomitant]
     Indication: HYPERTENSION
     Route: 048
  11. NORVASC [Concomitant]
     Indication: HYPERTENSION
     Route: 048
     Dates: start: 20040123, end: 20040223
  12. ITRIZOLE [Concomitant]
     Indication: GASTROINTESTINAL CANDIDIASIS
     Route: 048
     Dates: start: 20040604, end: 20040708
  13. FUNGIZONE [Concomitant]
     Indication: GASTROINTESTINAL CANDIDIASIS
     Route: 048
     Dates: start: 20040603, end: 20040624
  14. FERROMIA [Concomitant]
     Indication: ANAEMIA
     Route: 048
     Dates: start: 20040525
  15. PREDONINE [Concomitant]
     Indication: RHEUMATOID ARTHRITIS
     Route: 048
     Dates: start: 20010328

REACTIONS (10)
  - ARTHRALGIA [None]
  - C-REACTIVE PROTEIN INCREASED [None]
  - CONDITION AGGRAVATED [None]
  - GASTROINTESTINAL CANDIDIASIS [None]
  - HAEMOGLOBIN DECREASED [None]
  - INFECTION [None]
  - PYREXIA [None]
  - RED BLOOD CELL SEDIMENTATION RATE INCREASED [None]
  - RHEUMATOID ARTHRITIS [None]
  - UPPER RESPIRATORY TRACT INFECTION [None]
